FAERS Safety Report 6928342-6 (Version None)
Quarter: 2010Q3

REPORT INFORMATION
  Report Type: 
  Country: None (occurrence: None)
  Receive Date: 20100817
  Receipt Date: 20100805
  Transmission Date: 20110219
  Serious: Yes (Other)
  Sender: FDA-Public Use
  Company Number: US-BAYER-201030290NA

PATIENT
  Sex: Male
  Weight: 73 kg

DRUGS (12)
  1. MAGNEVIST [Suspect]
     Indication: NUCLEAR MAGNETIC RESONANCE IMAGING
     Route: 042
     Dates: start: 20030507, end: 20030507
  2. OMNISCAN [Suspect]
     Indication: NUCLEAR MAGNETIC RESONANCE IMAGING BRAIN
     Route: 042
     Dates: start: 20020812, end: 20020812
  3. NORVASC [Concomitant]
  4. SODIUM NITROPRUSSIDE [Concomitant]
  5. LABETALOL [Concomitant]
  6. ACCUPRIL [Concomitant]
  7. CLONIDINE [Concomitant]
  8. NIFEDIPINE [Concomitant]
  9. PHENYTOIN [Concomitant]
  10. HYDRALAZINE [Concomitant]
  11. EPOETIN [Concomitant]
  12. DIVALPROEX SODIUM [Concomitant]

REACTIONS (8)
  - BONE PAIN [None]
  - DRY SKIN [None]
  - HYPERKERATOSIS [None]
  - HYPOAESTHESIA [None]
  - MUSCULOSKELETAL PAIN [None]
  - NEPHROGENIC SYSTEMIC FIBROSIS [None]
  - OEDEMA [None]
  - SKIN HYPERPIGMENTATION [None]
